FAERS Safety Report 9412156 (Version 3)
Quarter: 2013Q3

REPORT INFORMATION
  Report Type: Report from Study
  Country: JP (occurrence: JP)
  Receive Date: 20130722
  Receipt Date: 20130802
  Transmission Date: 20140515
  Serious: Yes (Death)
  Sender: FDA-Public Use
  Company Number: JP-ROCHE-1251015

PATIENT
  Age: 95 Year
  Sex: Female

DRUGS (11)
  1. METHOXY POLYETHYLENE GLYCOL-EPOETIN BETA [Suspect]
     Indication: NEPHROGENIC ANAEMIA
     Route: 058
     Dates: start: 20120913, end: 20130531
  2. VESICARE [Concomitant]
     Route: 048
  3. CRESTOR [Concomitant]
     Route: 048
  4. ARTIST [Concomitant]
     Route: 048
  5. HYDROCHLOROTHIAZIDE/TELMISARTAN [Concomitant]
     Dosage: BRAND NAME: MICOMBI, GENERIC NAME: TELMISARTAN HYDROCHLOROTHIAZIDE COMBINED DRUG
     Route: 048
  6. KREMEZIN [Concomitant]
     Route: 048
  7. FEBURIC [Concomitant]
     Route: 048
  8. NORVASC [Concomitant]
     Route: 048
  9. THYRADIN-S [Concomitant]
     Route: 048
  10. ARGAMATE [Concomitant]
     Indication: NEPHROSCLEROSIS
     Route: 048
  11. FUROSEMIDE [Concomitant]
     Route: 048
     Dates: start: 20130314

REACTIONS (3)
  - Marasmus [Fatal]
  - Herpes virus infection [Unknown]
  - Decreased appetite [Unknown]
